FAERS Safety Report 4950867-3 (Version None)
Quarter: 2006Q1

REPORT INFORMATION
  Report Type: 
  Country: None (occurrence: None)
  Receive Date: 20060316
  Receipt Date: 20060307
  Transmission Date: 20060701
  Serious: Yes (Life-Threatening)
  Sender: FDA-Public Use
  Company Number: RU-2006-001596

PATIENT
  Sex: 0

DRUGS (1)
  1. BETAFERON (BETAFERON (SH Y 579E)) BETAFERON (INTERFERON BETA-1B) INJEC [Suspect]
     Indication: MULTIPLE SCLEROSIS
     Dosage: SUBCUTANEOUS
     Route: 058

REACTIONS (1)
  - MYOCARDIAL INFARCTION [None]
